FAERS Safety Report 9977317 (Version 1)
Quarter: 2014Q1

REPORT INFORMATION
  Report Type: Report from Study
  Country: US (occurrence: US)
  Receive Date: 20140306
  Receipt Date: 20140306
  Transmission Date: 20141002
  Serious: No
  Sender: FDA-Public Use
  Company Number: US-ABBVIE-13P-163-1165078-00

PATIENT
  Age: 35 Year
  Sex: Female
  Weight: 49.03 kg

DRUGS (4)
  1. HUMIRA [Suspect]
     Indication: PSORIASIS
     Dates: start: 2011, end: 201210
  2. HUMIRA [Suspect]
     Dosage: 80MG ON WEEK 1
     Dates: start: 201210, end: 201210
  3. HUMIRA [Suspect]
     Dosage: 40MG ON WEEK 2 THEN SKIP A DOSE ON WEEK 3 IN A REPEATING CYCLE
     Dates: start: 2012
  4. ZOLOFT [Concomitant]
     Indication: DEPRESSION

REACTIONS (2)
  - Psoriasis [Recovered/Resolved]
  - Psoriasis [Recovered/Resolved]
